FAERS Safety Report 13906741 (Version 1)
Quarter: 2017Q3

REPORT INFORMATION
  Report Type: Spontaneous
  Country: PT (occurrence: PT)
  Receive Date: 20170825
  Receipt Date: 20170825
  Transmission Date: 20171127
  Serious: Yes (Death, Other)
  Sender: FDA-Public Use
  Company Number: PT-JNJFOC-20170821668

PATIENT

DRUGS (1)
  1. IBRUTINIB [Suspect]
     Active Substance: IBRUTINIB
     Indication: CHRONIC LYMPHOCYTIC LEUKAEMIA
     Route: 048

REACTIONS (7)
  - Infection [Fatal]
  - Diarrhoea [Unknown]
  - Anaemia [Unknown]
  - Arthralgia [Unknown]
  - Thrombocytopenia [Unknown]
  - Haemorrhage [Fatal]
  - Neutropenia [Unknown]
